FAERS Safety Report 17274143 (Version 1)
Quarter: 2020Q1

REPORT INFORMATION
  Report Type: Report from Study
  Country: FR (occurrence: FR)
  Receive Date: 20200115
  Receipt Date: 20200115
  Transmission Date: 20200409
  Serious: Yes (Other)
  Sender: FDA-Public Use
  Company Number: FR-JNJFOC-20191145907

PATIENT
  Age: 67 Year
  Sex: Male
  Weight: 90 kg

DRUGS (19)
  1. REMICADE [Suspect]
     Active Substance: INFLIXIMAB
     Route: 042
     Dates: start: 20110406, end: 20110406
  2. REMICADE [Suspect]
     Active Substance: INFLIXIMAB
     Indication: PSORIASIS
     Route: 042
     Dates: start: 20101124
  3. PERINDOPRIL [Concomitant]
     Active Substance: PERINDOPRIL
  4. KARDEGIC [Concomitant]
     Active Substance: ASPIRIN DL-LYSINE
  5. STELARA [Suspect]
     Active Substance: USTEKINUMAB
     Route: 058
     Dates: start: 20150511, end: 20160406
  6. APIDRA [Concomitant]
     Active Substance: INSULIN GLULISINE
  7. METFORMINE [Concomitant]
     Active Substance: METFORMIN HYDROCHLORIDE
  8. XAMIOL                             /06356901/ [Concomitant]
  9. STELARA [Suspect]
     Active Substance: USTEKINUMAB
     Indication: PSORIASIS
     Route: 058
     Dates: start: 20140716, end: 20140716
  10. STELARA [Suspect]
     Active Substance: USTEKINUMAB
     Route: 058
     Dates: start: 20160406, end: 20170419
  11. REMICADE [Suspect]
     Active Substance: INFLIXIMAB
     Route: 042
     Dates: start: 20110325, end: 20110325
  12. REMICADE [Suspect]
     Active Substance: INFLIXIMAB
     Route: 042
     Dates: start: 20110504, end: 20110830
  13. ATORVASTATINE                      /01326101/ [Concomitant]
     Active Substance: ATORVASTATIN
  14. ATARAX [Concomitant]
     Active Substance: HYDROXYZINE HYDROCHLORIDE
  15. IXEKIZUMAB [Concomitant]
     Active Substance: IXEKIZUMAB
     Route: 058
     Dates: start: 20190328
  16. STELARA [Suspect]
     Active Substance: USTEKINUMAB
     Route: 058
     Dates: start: 20170419, end: 20190328
  17. STELARA [Suspect]
     Active Substance: USTEKINUMAB
     Dosage: 45, 90 MG
     Route: 058
     Dates: start: 20140813, end: 20150511
  18. REMICADE [Suspect]
     Active Substance: INFLIXIMAB
     Route: 042
     Dates: start: 20101210
  19. DEXERYL                            /01579901/ [Concomitant]
     Active Substance: GLYCERIN\MINERAL OIL\PETROLATUM

REACTIONS (3)
  - Off label use [Unknown]
  - Transient ischaemic attack [Recovered/Resolved]
  - Inappropriate schedule of product administration [Unknown]

NARRATIVE: CASE EVENT DATE: 20140716
